FAERS Safety Report 5019460-0 (Version None)
Quarter: 2006Q2

REPORT INFORMATION
  Report Type: 
  Country: None (occurrence: None)
  Receive Date: 20060531
  Receipt Date: 20060522
  Transmission Date: 20061013
  Serious: Yes (Hospitalization, Other)
  Sender: FDA-Public Use
  Company Number: 2006052033

PATIENT
  Age: 15 Year
  Sex: Female
  Weight: 58.3 kg

DRUGS (5)
  1. GENOTROPIN [Suspect]
     Indication: ILL-DEFINED DISORDER
     Dosage: SUBCUTANEOUS
     Route: 058
     Dates: end: 20050912
  2. LEVOTHYROXINE SODIUM [Concomitant]
  3. LOESTRIN 24 [Concomitant]
  4. HYDROCORTISONE [Concomitant]
  5. DESMOPRESSIN ACETATE [Concomitant]

REACTIONS (6)
  - ASTHENIA [None]
  - DYSARTHRIA [None]
  - FALL [None]
  - FATIGUE [None]
  - HEMIPARESIS [None]
  - MOYAMOYA DISEASE [None]
